FAERS Safety Report 4679828-9 (Version None)
Quarter: 2005Q2

REPORT INFORMATION
  Report Type: 
  Country: None (occurrence: None)
  Receive Date: 20050602
  Receipt Date: 20041021
  Transmission Date: 20051028
  Serious: No
  Sender: FDA-Public Use
  Company Number: US-GLAXOSMITHKLINE-A0530825A

PATIENT
  Age: 71 Year
  Sex: Female

DRUGS (5)
  1. AUGMENTIN [Suspect]
     Indication: ILL-DEFINED DISORDER
     Dosage: 1TAB TWICE PER DAY
     Route: 048
     Dates: start: 20041021
  2. FUROSEMIDE [Concomitant]
  3. NADOLOL [Concomitant]
  4. ALTACE [Concomitant]
  5. WARFARIN [Concomitant]

REACTIONS (4)
  - DYSGEUSIA [None]
  - DYSPEPSIA [None]
  - STOMACH DISCOMFORT [None]
  - VOMITING [None]
